FAERS Safety Report 19263176 (Version 1)
Quarter: 2021Q2

REPORT INFORMATION
  Report Type: Spontaneous
  Country: US (occurrence: US)
  Receive Date: 20210517
  Receipt Date: 20210517
  Transmission Date: 20210717
  Serious: Yes (Hospitalization, Other)
  Sender: FDA-Public Use
  Company Number: US-SA-2021SA159537

PATIENT
  Age: 68 Year
  Sex: Female

DRUGS (1)
  1. DOXYLAMINE SUCCINATE. [Suspect]
     Active Substance: DOXYLAMINE SUCCINATE
     Dosage: ACCIDENTALLY TAKING TWENTY TIMES THE RECOMMENDED DOSE

REACTIONS (6)
  - Ventricular extrasystoles [Recovering/Resolving]
  - Accidental overdose [Recovering/Resolving]
  - Mental status changes [Unknown]
  - Torsade de pointes [Recovering/Resolving]
  - Ventricular tachycardia [Recovering/Resolving]
  - Electrocardiogram QT prolonged [Recovering/Resolving]
